FAERS Safety Report 7388980-6 (Version None)
Quarter: 2011Q2

REPORT INFORMATION
  Report Type: 
  Country: None (occurrence: None)
  Receive Date: 20110401
  Receipt Date: 20110321
  Transmission Date: 20111010
  Serious: Yes (Hospitalization, Other)
  Sender: FDA-Public Use
  Company Number: US-CELGENEUS-163-21880-11032499

PATIENT
  Sex: Female
  Weight: 59.474 kg

DRUGS (16)
  1. REVLIMID [Suspect]
     Dosage: 10 MILLIGRAM
     Route: 048
     Dates: start: 20100301
  2. CALCIUM +D [Concomitant]
     Route: 048
     Dates: start: 20060101
  3. ASCORBIC ACID [Concomitant]
     Route: 048
     Dates: start: 20060101
  4. MIRALAX [Concomitant]
     Route: 048
     Dates: start: 20101001
  5. REVLIMID [Suspect]
     Indication: MULTIPLE MYELOMA
     Dosage: 10 MILLIGRAM
     Route: 048
     Dates: start: 20090201
  6. ASPIRIN [Concomitant]
     Dosage: 81 MILLIGRAM
     Route: 048
     Dates: start: 20060101
  7. REVLIMID [Suspect]
     Dosage: 25 MILLIGRAM
     Route: 048
     Dates: start: 20091201
  8. ZYRTEC [Concomitant]
     Route: 048
     Dates: start: 20100101
  9. LOVAZA [Concomitant]
     Route: 048
     Dates: start: 20060101
  10. ZOMETA [Concomitant]
     Route: 050
     Dates: start: 20090101
  11. COLACE [Concomitant]
     Route: 048
     Dates: start: 20110201
  12. REVLIMID [Suspect]
     Dosage: 10 MILLIGRAM
     Route: 048
     Dates: start: 20110206, end: 20110101
  13. SODIUM CHLORIDE [Concomitant]
     Route: 065
     Dates: start: 20080101
  14. M.V.I. [Concomitant]
     Route: 048
     Dates: start: 20060101
  15. GLUCOSAMINE/CHONDROITIN [Concomitant]
     Route: 048
     Dates: start: 20060101
  16. FLONASE [Concomitant]
     Route: 055
     Dates: start: 20100101

REACTIONS (1)
  - FAECALOMA [None]
